FAERS Safety Report 19458800 (Version 1)
Quarter: 2021Q2

REPORT INFORMATION
  Report Type: Spontaneous
  Country: US (occurrence: US)
  Receive Date: 20210624
  Receipt Date: 20210624
  Transmission Date: 20210717
  Serious: Yes (Other)
  Sender: FDA-Public Use
  Company Number: US-ACELLA PHARMACEUTICALS, LLC-2113075

PATIENT

DRUGS (1)
  1. NP THYROID [Suspect]
     Active Substance: LEVOTHYROXINE\LIOTHYRONINE
     Indication: PRODUCT USED FOR UNKNOWN INDICATION
     Route: 065

REACTIONS (16)
  - Depression [Unknown]
  - Dry skin [Unknown]
  - Swelling face [Unknown]
  - Anxiety [Unknown]
  - Feeling abnormal [Unknown]
  - Feeling cold [Unknown]
  - Myalgia [Unknown]
  - Impaired work ability [Unknown]
  - Fatigue [Unknown]
  - Impaired healing [Unknown]
  - Quality of life decreased [Unknown]
  - Alopecia [Unknown]
  - Wound [Unknown]
  - Weight increased [Unknown]
  - Arthralgia [Unknown]
  - Weight loss poor [Unknown]
